FAERS Safety Report 7994548-0 (Version None)
Quarter: 2011Q4

REPORT INFORMATION
  Report Type: 
  Country: None (occurrence: None)
  Receive Date: 20111220
  Receipt Date: 20111213
  Transmission Date: 20120403
  Serious: Yes (Hospitalization)
  Sender: FDA-Public Use
  Company Number: FR-JNJFOC-20111206908

PATIENT
  Sex: Male

DRUGS (5)
  1. NEXIUM [Suspect]
     Indication: ILL-DEFINED DISORDER
     Route: 048
     Dates: start: 20110722, end: 20110728
  2. CELEBREX [Suspect]
     Indication: ILL-DEFINED DISORDER
     Route: 048
     Dates: start: 20110725, end: 20110728
  3. PRAVASTATIN [Concomitant]
     Indication: DYSLIPIDAEMIA
     Route: 048
  4. XARELTO [Suspect]
     Indication: THROMBOSIS PROPHYLAXIS
     Route: 065
     Dates: start: 20110722, end: 20110726
  5. PERINDOPRIL ERBUMINE [Concomitant]
     Indication: HYPERTENSION
     Route: 048

REACTIONS (1)
  - DEEP VEIN THROMBOSIS [None]
